FAERS Safety Report 12524772 (Version 1)
Quarter: 2016Q3

REPORT INFORMATION
  Report Type: Spontaneous
  Country: US (occurrence: US)
  Receive Date: 20160704
  Receipt Date: 20160704
  Transmission Date: 20161109
  Serious: No
  Sender: FDA-Public Use
  Company Number: ALCN2016US004489

PATIENT
  Age: 79 Year
  Sex: Female

DRUGS (1)
  1. NEO AND POLYMYXIN B SULFATES + DEX [Suspect]
     Active Substance: DEXAMETHASONE\NEOMYCIN SULFATE\POLYMYXIN B SULFATE
     Indication: CONJUNCTIVITIS
     Dosage: 1 GTT, Q2H
     Route: 047
     Dates: start: 20160527, end: 20160527

REACTIONS (5)
  - Corneal abrasion [Unknown]
  - Product use issue [Recovered/Resolved]
  - Accidental overdose [Recovered/Resolved]
  - Eye irritation [Recovered/Resolved]
  - Eye pain [Recovered/Resolved]

NARRATIVE: CASE EVENT DATE: 20160527
